FAERS Safety Report 11189986 (Version 2)
Quarter: 2015Q3

REPORT INFORMATION
  Report Type: Spontaneous
  Country: US (occurrence: US)
  Receive Date: 20150615
  Receipt Date: 20150923
  Transmission Date: 20151125
  Serious: No
  Sender: FDA-Public Use
  Company Number: US-PFIZER INC-2015197056

PATIENT
  Age: 68 Year
  Sex: Female
  Weight: 52 kg

DRUGS (1)
  1. VFEND [Suspect]
     Active Substance: VORICONAZOLE
     Indication: COCCIDIOIDOMYCOSIS
     Dosage: 200 MG, 2X/DAY (ONE IN  MORNING, ONE AT NIGHT)
     Route: 048
     Dates: start: 201504, end: 201506

REACTIONS (5)
  - Rash papular [Recovering/Resolving]
  - Rash pruritic [Recovering/Resolving]
  - Skin exfoliation [Unknown]
  - Gastrointestinal hypomotility [Unknown]
  - Product use issue [Unknown]

NARRATIVE: CASE EVENT DATE: 201504
